FAERS Safety Report 7352375-1 (Version None)
Quarter: 2011Q1

REPORT INFORMATION
  Report Type: 
  Country: None (occurrence: None)
  Receive Date: 20110315
  Receipt Date: 20110311
  Transmission Date: 20110831
  Serious: Yes (Death)
  Sender: FDA-Public Use
  Company Number: US-ELI_LILLY_AND_COMPANY-US201103003818

PATIENT
  Sex: Male
  Weight: 70.295 kg

DRUGS (6)
  1. PRASUGREL HYDROCHLORIDE [Suspect]
     Dosage: 5 MG, DAILY (1/D)
     Dates: start: 20101203
  2. OMEPRAZOLE [Concomitant]
     Indication: GASTROOESOPHAGEAL REFLUX DISEASE
     Dosage: 20 MG, 2/D
     Route: 048
  3. NPH INSULIN [Concomitant]
     Indication: DIABETES MELLITUS
     Dosage: 5 IU, 2/D
     Route: 058
  4. PRASUGREL HYDROCHLORIDE [Suspect]
     Indication: ACUTE CORONARY SYNDROME
     Dosage: 30 MG, ONCE
     Dates: start: 20101202, end: 20101202
  5. ASPIRIN [Concomitant]
     Indication: PRODUCT USED FOR UNKNOWN INDICATION
     Dosage: 81 MG, DAILY (1/D)
  6. NOVOLIN 70/30 [Concomitant]
     Indication: DIABETES MELLITUS
     Dosage: SLIDING IU, 3/D
     Route: 058

REACTIONS (1)
  - DEATH [None]
